FAERS Safety Report 5266511-4 (Version None)
Quarter: 2007Q1

REPORT INFORMATION
  Report Type: 
  Country: None (occurrence: None)
  Receive Date: 20070315
  Receipt Date: 20070302
  Transmission Date: 20070707
  Serious: Yes (Hospitalization)
  Sender: FDA-Public Use
  Company Number: US-ELI_LILLY_AND_COMPANY-US200703000588

PATIENT
  Age: 73 Year
  Sex: Female
  Weight: 66.213 kg

DRUGS (6)
  1. FORTEO [Suspect]
     Indication: OSTEOPOROSIS
     Dates: start: 20070101
  2. COUMADIN [Concomitant]
     Indication: THROMBOSIS
  3. TOPROL-XL [Concomitant]
     Indication: CARDIAC DISORDER
     Dosage: 50 MG, DAILY (1/D)
  4. COLCHICINE [Concomitant]
     Indication: PROTEINURIA
     Dosage: 1.2 MG, DAILY (1/D)
  5. BENAZEPRIL HYDROCHLORIDE [Concomitant]
     Dosage: 20 MG, UNK
  6. AMBIEN [Concomitant]
     Dosage: UNK, AS NEEDED

REACTIONS (6)
  - CONVULSION [None]
  - CYSTITIS [None]
  - DRUG HYPERSENSITIVITY [None]
  - FEELING ABNORMAL [None]
  - MALAISE [None]
  - PALLOR [None]
